FAERS Safety Report 8163906-6 (Version None)
Quarter: 2012Q1

REPORT INFORMATION
  Report Type: 
  Country: None (occurrence: None)
  Receive Date: 20120224
  Receipt Date: 20120215
  Transmission Date: 20120608
  Serious: Yes (Hospitalization)
  Sender: FDA-Public Use
  Company Number: PHHO2011NO10661

PATIENT
  Sex: Male
  Weight: 92 kg

DRUGS (3)
  1. NEORAL [Suspect]
     Indication: RENAL TRANSPLANT
     Dosage: 400 MG, UNK
     Dates: start: 20110207, end: 20110404
  2. PREDNISOLONE [Suspect]
     Indication: RENAL TRANSPLANT
     Dosage: 15 MG, UNK
     Dates: start: 20110324, end: 20110404
  3. MYFORTIC [Concomitant]
     Indication: RENAL TRANSPLANT
     Dosage: 1440 MG, UNK
     Dates: start: 20110207, end: 20110404

REACTIONS (1)
  - LYMPHOCELE [None]
